FAERS Safety Report 22000425 (Version 1)
Quarter: 2023Q1

REPORT INFORMATION
  Report Type: Spontaneous
  Country: FR (occurrence: FR)
  Receive Date: 20230216
  Receipt Date: 20230216
  Transmission Date: 20230418
  Serious: Yes (Other)
  Sender: FDA-Public Use
  Company Number: None

PATIENT
  Age: 68 Year
  Sex: Female

DRUGS (1)
  1. THALLIUM TL-201 [Suspect]
     Active Substance: THALLIUM TL-201
     Indication: Scan myocardial perfusion
     Route: 040
     Dates: start: 20220906, end: 20220906

REACTIONS (1)
  - Tongue geographic [Not Recovered/Not Resolved]

NARRATIVE: CASE EVENT DATE: 20220907
